FAERS Safety Report 5653868-5 (Version None)
Quarter: 2008Q1

REPORT INFORMATION
  Report Type: 
  Country: None (occurrence: None)
  Receive Date: 20080306
  Receipt Date: 20080225
  Transmission Date: 20080703
  Serious: Yes (Other)
  Sender: FDA-Public Use
  Company Number: JP-ASTRAZENECA-2007AP08050

PATIENT
  Age: 34 Year
  Sex: Female

DRUGS (3)
  1. TENORMIN [Suspect]
     Indication: PALPITATIONS
     Dosage: 25 MG/DAY USUALLY, 50 MG/DAY SOMETIMES.
     Route: 048
     Dates: start: 20061201
  2. MERCAZOLE [Concomitant]
     Indication: HYPERTHYROIDISM
     Dosage: DOSE UNKNOWN
     Route: 048
  3. PREDONINE [Concomitant]
     Dosage: DOSE UNKNOWN
     Route: 048

REACTIONS (2)
  - ABORTION SPONTANEOUS [None]
  - DRUG EXPOSURE DURING PREGNANCY [None]
